FAERS Safety Report 10228334 (Version 1)
Quarter: 2014Q2

REPORT INFORMATION
  Report Type: Spontaneous
  Country: US (occurrence: None)
  Receive Date: 20140505
  Receipt Date: 20140505
  Transmission Date: 20141212
  Serious: No
  Sender: FDA-Public Use
  Company Number: US-014621

PATIENT
  Age: 62 Year
  Sex: Female

DRUGS (1)
  1. PICO-SALAX (NOT SPECIFIED) [Suspect]
     Indication: BOWEL PREPARATION
     Dosage: 1ST DOSE AT 3 PM, 2ND DOSE AT 6 PM
     Route: 048

REACTIONS (3)
  - Dry skin [None]
  - Abdominal distension [None]
  - Drug ineffective [None]
